FAERS Safety Report 13466348 (Version 1)
Quarter: 2017Q2

REPORT INFORMATION
  Report Type: Spontaneous
  Country: US (occurrence: US)
  Receive Date: 20170420
  Receipt Date: 20170420
  Transmission Date: 20170830
  Serious: Yes (Death)
  Sender: FDA-Public Use
  Company Number: None

PATIENT
  Age: 59 Year
  Sex: Female

DRUGS (1)
  1. REVLIMID [Suspect]
     Active Substance: LENALIDOMIDE
     Indication: LYMPHOMA
     Route: 048
     Dates: start: 20170328

REACTIONS (8)
  - Dehydration [None]
  - Asthenia [None]
  - Electrolyte depletion [None]
  - Delirium [None]
  - General physical health deterioration [None]
  - Hypophagia [None]
  - Stomatitis [None]
  - Hypoxia [None]

NARRATIVE: CASE EVENT DATE: 20170410
